FAERS Safety Report 7282153-3 (Version None)
Quarter: 2011Q1

REPORT INFORMATION
  Report Type: 
  Country: None (occurrence: None)
  Receive Date: 20110208
  Receipt Date: 20110202
  Transmission Date: 20110831
  Serious: Yes (Other)
  Sender: FDA-Public Use
  Company Number: US-PFIZER INC-2011025023

PATIENT
  Sex: Female

DRUGS (8)
  1. PROZAC [Concomitant]
     Indication: DEPRESSION
  2. BUPRENORPHINE HYDROCHLORIDE [Concomitant]
     Indication: DRUG DEPENDENCE
  3. SEROQUEL [Concomitant]
     Indication: BIPOLAR DISORDER
  4. GABAPENTIN [Suspect]
     Indication: BIPOLAR DISORDER
  5. KLONOPIN [Concomitant]
     Indication: ANXIETY
  6. CHANTIX [Suspect]
     Dosage: UNK
     Dates: start: 20110201, end: 20110201
  7. NAPROXEN [Concomitant]
     Indication: ARTHRITIS
  8. LAMOTRIGINE [Concomitant]
     Indication: BIPOLAR DISORDER

REACTIONS (4)
  - GAIT DISTURBANCE [None]
  - DYSPNOEA [None]
  - DYSARTHRIA [None]
  - COORDINATION ABNORMAL [None]
